FAERS Safety Report 10917696 (Version 2)
Quarter: 2015Q2

REPORT INFORMATION
  Report Type: Spontaneous
  Country: US (occurrence: US)
  Receive Date: 20150316
  Receipt Date: 20150402
  Transmission Date: 20150821
  Serious: Yes (Death, Hospitalization, Disabling, Other)
  Sender: FDA-Public Use
  Company Number: US-BAYER-2015-033407

PATIENT
  Age: 63 Year
  Sex: Male

DRUGS (1)
  1. BAYER GENUINE ASPIRIN [Suspect]
     Active Substance: ASPIRIN
     Indication: ANTICOAGULANT THERAPY
     Dosage: 2 DF, QD
     Route: 048
     Dates: start: 1979, end: 199702

REACTIONS (9)
  - Coma [Recovered/Resolved]
  - Medication error [None]
  - Bradypnoea [None]
  - Incorrect drug administration duration [None]
  - Cardiac arrest [Fatal]
  - Epiglottic mass [None]
  - Dysphagia [None]
  - Cerebrovascular accident [None]
  - Transient ischaemic attack [Recovered/Resolved]

NARRATIVE: CASE EVENT DATE: 1979
